FAERS Safety Report 19904687 (Version 1)
Quarter: 2021Q3

REPORT INFORMATION
  Report Type: Spontaneous
  Country: BR (occurrence: BR)
  Receive Date: 20210930
  Receipt Date: 20210930
  Transmission Date: 20211014
  Serious: Yes (Hospitalization)
  Sender: FDA-Public Use
  Company Number: BR-ASTRAZENECA-2021A737483

PATIENT
  Age: 75 Year
  Sex: Female

DRUGS (12)
  1. NIBLES [Concomitant]
  2. VELIJA [Concomitant]
     Active Substance: DULOXETINE HYDROCHLORIDE
  3. DIOVAN [Concomitant]
     Active Substance: VALSARTAN
  4. GLYXAMBI [Concomitant]
     Active Substance: EMPAGLIFLOZIN\LINAGLIPTIN
  5. CIMETRICIA [Concomitant]
  6. DEXILANT [Concomitant]
     Active Substance: DEXLANSOPRAZOLE
  7. EUTIROX [Concomitant]
     Active Substance: LEVOTHYROXINE SODIUM
  8. LIPLESS [Concomitant]
     Active Substance: CIPROFIBRATE
  9. EXINOPIX [Concomitant]
  10. CRESTOR [Suspect]
     Active Substance: ROSUVASTATIN CALCIUM
     Indication: CARDIAC DISORDER
     Route: 048
  11. CRESTOR [Suspect]
     Active Substance: ROSUVASTATIN CALCIUM
     Indication: BLOOD PRESSURE ABNORMAL
     Route: 048
  12. CRESTOR [Suspect]
     Active Substance: ROSUVASTATIN CALCIUM
     Indication: CARDIOVASCULAR EVENT PROPHYLAXIS
     Route: 048

REACTIONS (6)
  - Product administration error [Not Recovered/Not Resolved]
  - Product dose omission issue [Unknown]
  - Tremor [Not Recovered/Not Resolved]
  - Carotid artery occlusion [Unknown]
  - Condition aggravated [Not Recovered/Not Resolved]
  - Osteitis deformans [Not Recovered/Not Resolved]

NARRATIVE: CASE EVENT DATE: 20210919
